FAERS Safety Report 4610238-6 (Version None)
Quarter: 2005Q1

REPORT INFORMATION
  Report Type: 
  Country: None (occurrence: None)
  Receive Date: 20050316
  Receipt Date: 20050308
  Transmission Date: 20050727
  Serious: Yes (Hospitalization)
  Sender: FDA-Public Use
  Company Number: PHRM2005FR00993

PATIENT
  Age: 75 Year
  Sex: Male
  Weight: 91 kg

DRUGS (6)
  1. ALDACTONE [Suspect]
     Dosage: 25 MG/DAY
     Route: 048
     Dates: end: 20050127
  2. TAREG [Suspect]
     Indication: HYPERTENSION
     Dosage: 160 MG, QD
     Route: 048
     Dates: end: 20050127
  3. HYPERIUM [Concomitant]
     Dosage: 2 TAB/DAY
     Route: 048
     Dates: end: 20050127
  4. CELECTOL [Concomitant]
     Dosage: 200 MG, QD
     Route: 048
     Dates: end: 20050127
  5. PLAVIX [Concomitant]
     Dosage: 75 MG, QD
     Route: 048
     Dates: end: 20050127
  6. LASILIX [Concomitant]
     Dosage: 40 MG, TID
     Route: 048
     Dates: end: 20050127

REACTIONS (8)
  - ASTHENIA [None]
  - ATRIOVENTRICULAR BLOCK FIRST DEGREE [None]
  - BLOOD CREATININE INCREASED [None]
  - BUNDLE BRANCH BLOCK RIGHT [None]
  - DIZZINESS [None]
  - ELECTROCARDIOGRAM QT PROLONGED [None]
  - HYPERKALAEMIA [None]
  - RENAL FAILURE ACUTE [None]
